FAERS Safety Report 6727167-4 (Version None)
Quarter: 2010Q2

REPORT INFORMATION
  Report Type: 
  Country: None (occurrence: None)
  Receive Date: 20100512
  Receipt Date: 20100209
  Transmission Date: 20101027
  Serious: No
  Sender: FDA-Public Use
  Company Number: 1000011750

PATIENT
  Age: 46 Year
  Sex: Female

DRUGS (11)
  1. SAVELLA [Suspect]
     Indication: FIBROMYALGIA
     Dosage: 12.5 MG (12.5 MG,1 IN 1 D),ORAL; 25 MG (12.5 MG,2 IN 1 D),ORAL; 50 MG (25 MG,2 IN 1 D),ORAL; 100 MG
     Route: 048
     Dates: start: 20100121, end: 20100121
  2. SAVELLA [Suspect]
     Indication: FIBROMYALGIA
     Dosage: 12.5 MG (12.5 MG,1 IN 1 D),ORAL; 25 MG (12.5 MG,2 IN 1 D),ORAL; 50 MG (25 MG,2 IN 1 D),ORAL; 100 MG
     Route: 048
     Dates: start: 20100122, end: 20100123
  3. SAVELLA [Suspect]
     Indication: FIBROMYALGIA
     Dosage: 12.5 MG (12.5 MG,1 IN 1 D),ORAL; 25 MG (12.5 MG,2 IN 1 D),ORAL; 50 MG (25 MG,2 IN 1 D),ORAL; 100 MG
     Route: 048
     Dates: start: 20100124, end: 20100127
  4. SAVELLA [Suspect]
     Indication: FIBROMYALGIA
     Dosage: 12.5 MG (12.5 MG,1 IN 1 D),ORAL; 25 MG (12.5 MG,2 IN 1 D),ORAL; 50 MG (25 MG,2 IN 1 D),ORAL; 100 MG
     Route: 048
     Dates: start: 20100128
  5. MAXALT [Suspect]
     Indication: MIGRAINE
     Dosage: 10 MG,AS REGUIRED),ORAL
     Route: 048
  6. METHADONE [Concomitant]
  7. ATIVAN [Concomitant]
  8. RESTORIL [Concomitant]
  9. MIRTAZAPINE [Concomitant]
  10. BACLOFEN [Concomitant]
  11. FIORICET [Concomitant]

REACTIONS (9)
  - DISORIENTATION [None]
  - FLUSHING [None]
  - GAIT DISTURBANCE [None]
  - HEART RATE INCREASED [None]
  - MANIA [None]
  - MIGRAINE [None]
  - NAUSEA [None]
  - NERVOUSNESS [None]
  - VOMITING [None]
